FAERS Safety Report 6909726 (Version 2)
Quarter: 2015Q4

REPORT INFORMATION
  Report Type: Spontaneous
  Country: FR (occurrence: FR)
  Receive Date: 20090213
  Receipt Date: 20151116
  Transmission Date: 20160305
  Serious: Yes (Hospitalization)
  Sender: FDA-Public Use
  Company Number: FR-PFIZER INC-2009166059

PATIENT
  Age: 36 Year
  Sex: Female

DRUGS (4)
  1. CEFAZOLIN [Suspect]
     Active Substance: CEFAZOLIN
     Indication: ANTIBIOTIC PROPHYLAXIS
     Dosage: 2 G, 1X/DAY
     Route: 042
     Dates: start: 20080707, end: 20080707
  2. SOLU-MEDROL [Concomitant]
     Active Substance: METHYLPREDNISOLONE SODIUM SUCCINATE
     Dosage: 60 MG, 1X/DAY
     Route: 042
     Dates: start: 20080707, end: 20080707
  3. XANAX [Suspect]
     Active Substance: ALPRAZOLAM
     Indication: PREMEDICATION
     Dosage: 1 DF, DAILY
     Route: 048
     Dates: start: 20080707, end: 20080707
  4. HYPNOVEL /00634101/ [Suspect]
     Active Substance: MIDAZOLAM\MIDAZOLAM HYDROCHLORIDE
     Indication: PREMEDICATION
     Dosage: 1 MG, 1X/DAY
     Route: 040
     Dates: start: 20080707, end: 20080707

REACTIONS (3)
  - Tachycardia [Recovered/Resolved]
  - Hypotension [Recovering/Resolving]
  - Erythema [Recovered/Resolved]

NARRATIVE: CASE EVENT DATE: 20080707
